FAERS Safety Report 9255046 (Version 1)
Quarter: 2013Q2

REPORT INFORMATION
  Report Type: Spontaneous
  Country: US (occurrence: US)
  Receive Date: 20130425
  Receipt Date: 20130425
  Transmission Date: 20140414
  Serious: Yes (Other)
  Sender: FDA-Public Use
  Company Number: US-BAYER-2013-050208

PATIENT
  Age: 75 Year
  Sex: Male
  Weight: 93 kg

DRUGS (4)
  1. DOMEBORO POWDER PACKETS [Suspect]
     Dosage: DURATION: 2 TO 3 WEEKS
     Route: 061
     Dates: start: 2013
  2. DOMEBORO POWDER PACKETS [Suspect]
     Dosage: UNK
     Route: 061
     Dates: start: 2013
  3. BAYER ASPIRIN REGIMEN ADULT LOW STRENGTH [Concomitant]
     Dosage: UNK UNK, HS
  4. LOTENSIN [Concomitant]

REACTIONS (5)
  - Chemical injury [Recovered/Resolved]
  - Rash [Recovered/Resolved]
  - Facial pain [Recovered/Resolved]
  - Erythema [Recovered/Resolved]
  - Accidental exposure to product [None]
